FAERS Safety Report 5293038-6 (Version None)
Quarter: 2007Q2

REPORT INFORMATION
  Report Type: 
  Country: None (occurrence: None)
  Receive Date: 20070411
  Receipt Date: 20070404
  Transmission Date: 20071010
  Serious: Yes (Death, Hospitalization)
  Sender: FDA-Public Use
  Company Number: PHEH2007US04220

PATIENT
  Age: 64 Year
  Sex: Female

DRUGS (13)
  1. LASIX [Concomitant]
  2. XANAX [Concomitant]
  3. VICODIN [Concomitant]
  4. PHENERGAN HCL [Concomitant]
  5. ELAVIL [Concomitant]
  6. NEXIUM [Concomitant]
  7. LEXAPRO [Concomitant]
  8. PROCARDIA [Concomitant]
  9. ZOCOR [Concomitant]
  10. PLAVIX [Concomitant]
  11. LANTUS [Concomitant]
  12. INSULIN GLULISINE [Concomitant]
  13. ZELNORM [Suspect]
     Indication: CONSTIPATION
     Dosage: 6 MG, BID
     Route: 048
     Dates: start: 20060101, end: 20061113

REACTIONS (13)
  - CARDIAC ARREST [None]
  - CARDIAC OPERATION [None]
  - CATHETERISATION CARDIAC [None]
  - CHRONIC OBSTRUCTIVE PULMONARY DISEASE [None]
  - DYSPNOEA [None]
  - ENDOCARDITIS [None]
  - LIFE SUPPORT [None]
  - PNEUMONIA [None]
  - POSTOPERATIVE WOUND COMPLICATION [None]
  - PYREXIA [None]
  - SURGERY [None]
  - TERMINAL STATE [None]
  - WOUND INFECTION STAPHYLOCOCCAL [None]
